FAERS Safety Report 5854772-X (Version None)
Quarter: 2008Q3

REPORT INFORMATION
  Report Type: 
  Country: None (occurrence: None)
  Receive Date: 20080822
  Receipt Date: 20071218
  Transmission Date: 20090109
  Serious: No
  Sender: FDA-Public Use
  Company Number: US-ABBOTT-08P-163-0432195-00

PATIENT
  Sex: Female
  Weight: 58.112 kg

DRUGS (1)
  1. SYNTHROID [Suspect]
     Indication: THYROIDECTOMY
     Route: 048
     Dates: start: 19970101

REACTIONS (3)
  - ARTHROPOD BITE [None]
  - RASH MACULAR [None]
  - URTICARIA [None]
